FAERS Safety Report 7662392 (Version 3)
Quarter: 2013Q4

REPORT INFORMATION
  Report Type: Spontaneous
  Country: US (occurrence: US)
  Receive Date: 20101110
  Receipt Date: 20131101
  Transmission Date: 20140711
  Serious: Yes (Other)
  Sender: FDA-Public Use
  Company Number: US-BAYER-201039870NA

PATIENT
  Age: 34 Year
  Sex: Female
  Weight: 95.24 kg

DRUGS (12)
  1. YAZ [Suspect]
     Dosage: UNK
     Route: 048
     Dates: start: 200708, end: 200911
  2. YASMIN [Suspect]
     Route: 048
     Dates: start: 200407, end: 200708
  3. REGLAN [Concomitant]
  4. PREVACID [Concomitant]
  5. PROGESTERONE [Concomitant]
  6. OMEPRAZOLE [Concomitant]
     Dosage: 20 MG, UNK
  7. ONDANSETRON [Concomitant]
     Dosage: 4 MG, UNK
  8. AVELOX [Concomitant]
     Dosage: 400 MG, UNK
  9. PROPOXYPHENE HCL AND ACETAMINOPHEN [Concomitant]
     Dosage: 650 PRN
     Route: 048
  10. PROMETHAZINE [Concomitant]
     Indication: NAUSEA
     Dosage: 25 MG, PRN
     Route: 048
  11. PROMETHAZINE [Concomitant]
     Indication: VOMITING
  12. CIPROFLOXACIN [Concomitant]
     Dosage: 500 MG, BID
     Route: 048

REACTIONS (5)
  - Gallbladder disorder [Unknown]
  - Abdominal pain [Unknown]
  - Cholecystitis chronic [None]
  - Gastric disorder [None]
  - Biliary dyskinesia [None]
